FAERS Safety Report 25013584 (Version 1)
Quarter: 2025Q1

REPORT INFORMATION
  Report Type: Spontaneous
  Country: DK (occurrence: DK)
  Receive Date: 20250226
  Receipt Date: 20250226
  Transmission Date: 20250409
  Serious: Yes (Hospitalization, Other)
  Sender: PFIZER
  Company Number: None

PATIENT
  Age: 35 Year
  Sex: Male

DRUGS (3)
  1. LORLATINIB [Suspect]
     Active Substance: LORLATINIB
     Indication: Lung neoplasm malignant
     Dosage: 100 MG, 1X/DAY
     Route: 048
     Dates: start: 20241111, end: 20241208
  2. LORLATINIB [Suspect]
     Active Substance: LORLATINIB
     Dosage: 25 MG, 1X/DAY
     Route: 048
     Dates: start: 20250124, end: 20250131
  3. LORLATINIB [Suspect]
     Active Substance: LORLATINIB
     Dosage: 50 MG, 1X/DAY
     Route: 048
     Dates: start: 20250131, end: 20250206

REACTIONS (4)
  - Acute psychosis [Not Recovered/Not Resolved]
  - Acute psychosis [Recovered/Resolved]
  - Psychiatric symptom [Recovered/Resolved]
  - Illness [Recovered/Resolved]

NARRATIVE: CASE EVENT DATE: 20250101
